FAERS Safety Report 4775019-1 (Version None)
Quarter: 2005Q3

REPORT INFORMATION
  Report Type: 
  Country: None (occurrence: None)
  Receive Date: 20050920
  Receipt Date: 20050811
  Transmission Date: 20060218
  Serious: Yes (Hospitalization)
  Sender: FDA-Public Use
  Company Number: DSA_25263_2004

PATIENT
  Age: 83 Year
  Sex: Female

DRUGS (6)
  1. DILTIAZEM HYDROCHLORIDE [Suspect]
     Dosage: 300 MG Q DAY PO
     Route: 048
     Dates: start: 19990615
  2. PLAVIX [Suspect]
     Dosage: 75 MG Q DAY PO
     Route: 048
     Dates: start: 20040615, end: 20040820
  3. ALDACTONE [Suspect]
     Dosage: DF Q DAY PO
     Route: 048
     Dates: start: 20030615
  4. MODOPAR [Suspect]
     Dosage: 375 MG Q DAY PO
     Route: 048
     Dates: start: 19970615, end: 20040904
  5. OMEPRAZOLE [Suspect]
     Dosage: 10 MG Q DAY PO
     Route: 048
     Dates: start: 20030615
  6. ADANCOR [Suspect]
     Dosage: 20 MG Q DAY PO
     Route: 048
     Dates: start: 19960615

REACTIONS (1)
  - IDIOPATHIC THROMBOCYTOPENIC PURPURA [None]
